FAERS Safety Report 8135448-5 (Version None)
Quarter: 2012Q1

REPORT INFORMATION
  Report Type: 
  Country: None (occurrence: None)
  Receive Date: 20120214
  Receipt Date: 20120213
  Transmission Date: 20120608
  Serious: Yes (Hospitalization, Other)
  Sender: FDA-Public Use
  Company Number: FR-JNJFOC-20120204804

PATIENT
  Age: 30 Year
  Sex: Female

DRUGS (28)
  1. IFOSFAMIDE [Suspect]
     Route: 042
  2. IFOSFAMIDE [Suspect]
     Route: 042
  3. IFOSFAMIDE [Suspect]
     Dosage: CYCLE 2
     Route: 042
  4. DOXORUBICIN HCL [Suspect]
     Indication: BONE SARCOMA
     Route: 040
  5. IFOSFAMIDE [Suspect]
     Indication: BONE SARCOMA
     Route: 042
  6. METOCLOPRAMIDE [Concomitant]
     Indication: PROPHYLAXIS OF NAUSEA AND VOMITING
     Route: 042
  7. NEUPOGEN [Concomitant]
     Route: 065
  8. DOXORUBICIN HCL [Suspect]
     Route: 040
  9. DOXORUBICIN HCL [Suspect]
     Dosage: CYCLE 2
     Route: 040
  10. CISPLATIN [Concomitant]
     Route: 065
  11. NEUPOGEN [Concomitant]
     Route: 065
  12. DOXORUBICIN HCL [Suspect]
     Route: 040
  13. IFOSFAMIDE [Suspect]
     Route: 042
  14. ONDANSETRON [Concomitant]
     Indication: PROPHYLAXIS OF NAUSEA AND VOMITING
     Route: 065
  15. NEUPOGEN [Concomitant]
     Indication: PALLIATIVE CARE
     Route: 065
  16. NEUPOGEN [Concomitant]
     Route: 065
  17. NEUPOGEN [Concomitant]
     Route: 065
  18. DOXORUBICIN HCL [Suspect]
     Dosage: CYCLE 1
     Route: 040
  19. DOXORUBICIN HCL [Suspect]
     Dosage: CYCLE 1
     Route: 040
  20. DOXORUBICIN HCL [Suspect]
     Route: 040
  21. IFOSFAMIDE [Suspect]
     Route: 042
  22. IFOSFAMIDE [Suspect]
     Dosage: CYCLE 1
     Route: 042
  23. METOCLOPRAMIDE [Concomitant]
     Route: 042
  24. ETOPOSIDE [Concomitant]
     Indication: BONE SARCOMA
     Route: 065
  25. ETOPOSIDE [Concomitant]
     Route: 065
  26. ETOPOSIDE [Concomitant]
     Route: 065
  27. DOXORUBICIN HCL [Suspect]
     Dosage: CYCLE 2
     Route: 040
  28. CISPLATIN [Concomitant]
     Indication: BONE SARCOMA
     Route: 065

REACTIONS (4)
  - NEUTROPENIA [None]
  - MATERNAL EXPOSURE DURING PREGNANCY [None]
  - PREMATURE DELIVERY [None]
  - ALOPECIA [None]
